FAERS Safety Report 20022564 (Version 2)
Quarter: 2022Q1

REPORT INFORMATION
  Report Type: Spontaneous
  Country: CH (occurrence: CH)
  Receive Date: 20211102
  Receipt Date: 20220105
  Transmission Date: 20220424
  Serious: Yes (Other)
  Sender: FDA-Public Use
  Company Number: CH-002147023-NVSC2021CH195514

PATIENT
  Sex: Female
  Weight: 48 kg

DRUGS (25)
  1. XOLAIR [Suspect]
     Active Substance: OMALIZUMAB
     Indication: Chronic spontaneous urticaria
     Route: 058
     Dates: start: 2016
  2. XOLAIR [Suspect]
     Active Substance: OMALIZUMAB
     Dosage: 1 DF (1 AMPOULE RIGHT UPPER ARM)
     Route: 058
     Dates: start: 20191025
  3. XOLAIR [Suspect]
     Active Substance: OMALIZUMAB
     Dosage: 1 DF (1 AMPOULE RIGHT UPPER ARM)
     Route: 058
     Dates: start: 20191209
  4. XOLAIR [Suspect]
     Active Substance: OMALIZUMAB
     Dosage: 1 DF (1 AMPOULE RIGHT UPPER ARM)
     Route: 058
     Dates: start: 20200113
  5. XOLAIR [Suspect]
     Active Substance: OMALIZUMAB
     Dosage: 1 DF (1 AMPOULE RIGHT UPPER ARM)
     Route: 058
     Dates: start: 20200224
  6. XOLAIR [Suspect]
     Active Substance: OMALIZUMAB
     Dosage: 1 DF (1 AMPOULE RIGHT UPPER ARM)
     Route: 058
     Dates: start: 20200327
  7. XOLAIR [Suspect]
     Active Substance: OMALIZUMAB
     Dosage: 1 DF (1 AMPOULE RIGHT UPPER ARM)
     Route: 058
     Dates: start: 20200424
  8. XOLAIR [Suspect]
     Active Substance: OMALIZUMAB
     Dosage: 1 DF (1 AMPOULE RIGHT UPPER ARM)
     Route: 058
     Dates: start: 20200527
  9. XOLAIR [Suspect]
     Active Substance: OMALIZUMAB
     Dosage: 1 DF (1 AMPOULE RIGHT UPPER ARM)
     Route: 058
     Dates: start: 20200703
  10. XOLAIR [Suspect]
     Active Substance: OMALIZUMAB
     Dosage: 1 DF (1 AMPOULE RIGHT UPPER ARM)
     Route: 058
     Dates: start: 20200729
  11. XOLAIR [Suspect]
     Active Substance: OMALIZUMAB
     Dosage: 1 DF (1 AMPOULE RIGHT UPPER ARM)
     Route: 058
     Dates: start: 20200828
  12. XOLAIR [Suspect]
     Active Substance: OMALIZUMAB
     Dosage: 1 DF (1 AMPOULE RIGHT UPPER ARM)
     Route: 058
     Dates: start: 20200930
  13. XOLAIR [Suspect]
     Active Substance: OMALIZUMAB
     Dosage: 1 DF (1 AMPOULE RIGHT UPPER ARM)
     Route: 058
     Dates: start: 20201123
  14. XOLAIR [Suspect]
     Active Substance: OMALIZUMAB
     Dosage: 1 DF (1 AMPOULE RIGHT UPPER ARM)
     Route: 058
     Dates: start: 20201221
  15. XOLAIR [Suspect]
     Active Substance: OMALIZUMAB
     Dosage: 1 DF (1 AMPOULE RIGHT UPPER ARM)
     Route: 058
     Dates: start: 20210127
  16. XOLAIR [Suspect]
     Active Substance: OMALIZUMAB
     Dosage: 1 DF (1 AMPOULE RIGHT UPPER ARM)
     Route: 058
     Dates: start: 20210303
  17. XOLAIR [Suspect]
     Active Substance: OMALIZUMAB
     Dosage: 1 DF (1 AMPOULE RIGHT UPPER ARM)
     Route: 058
     Dates: start: 20210407
  18. XOLAIR [Suspect]
     Active Substance: OMALIZUMAB
     Dosage: 1 DF (1 AMPOULE RIGHT UPPER ARM)
     Route: 058
     Dates: start: 20210510
  19. XOLAIR [Suspect]
     Active Substance: OMALIZUMAB
     Dosage: 1 DF (1 AMPOULE RIGHT UPPER ARM)
     Route: 058
     Dates: start: 20210614
  20. XOLAIR [Suspect]
     Active Substance: OMALIZUMAB
     Dosage: 1 DF (1 AMPOULE RIGHT UPPER ARM)
     Route: 058
     Dates: start: 20210623, end: 202106
  21. XOLAIR [Suspect]
     Active Substance: OMALIZUMAB
     Dosage: 300 MG (2 AMPOULES RIGHT/LEFT UPPER ARM)
     Route: 058
     Dates: start: 202107
  22. FEXOFENADINE [Concomitant]
     Active Substance: FEXOFENADINE HYDROCHLORIDE
     Indication: Urticaria chronic
     Dosage: 180 MG (2-3 TIMES PER DAY)
     Route: 065
  23. FEXOFENADINE [Concomitant]
     Active Substance: FEXOFENADINE HYDROCHLORIDE
     Dosage: 2 DF, QD
     Route: 065
  24. FEXOFENADINE [Concomitant]
     Active Substance: FEXOFENADINE HYDROCHLORIDE
     Dosage: 3 DF, QD
     Route: 065
  25. SERETIDE [Concomitant]
     Active Substance: FLUTICASONE PROPIONATE\SALMETEROL XINAFOATE
     Indication: Asthma
     Dosage: UNK, BID (DOSE: 250, UNITS: UNSPECIFIED)
     Route: 065

REACTIONS (2)
  - Autoimmune thyroid disorder [Not Recovered/Not Resolved]
  - Drug ineffective [Unknown]

NARRATIVE: CASE EVENT DATE: 20210601
